FAERS Safety Report 24023601 (Version 2)
Quarter: 2024Q3

REPORT INFORMATION
  Report Type: Report from Study
  Country: GB (occurrence: GB)
  Receive Date: 20240627
  Receipt Date: 20240710
  Transmission Date: 20241017
  Serious: No
  Sender: ROCHE
  Company Number: GB-ROCHE-3569909

PATIENT
  Age: 34 Year
  Sex: Female
  Weight: 82.5 kg

DRUGS (3)
  1. VABYSMO [Suspect]
     Active Substance: FARICIMAB\FARICIMAB-SVOA
     Indication: Diabetic retinal oedema
     Dosage: DATE OF MOST RECENT DOSE OF FARICIMAB (6 MG) PRIOR TO ONSET OF AE AND SAE: 18/JAN/2024? FREQUENCY TE
     Route: 050
     Dates: start: 20230603
  2. METFORMIN [Concomitant]
     Active Substance: METFORMIN HYDROCHLORIDE
     Indication: Diabetes mellitus
     Route: 048
     Dates: start: 20220103
  3. NOVORAPID [Concomitant]
     Active Substance: INSULIN ASPART
     Indication: Diabetes mellitus
     Dosage: 100 IU/ML
     Route: 058
     Dates: start: 20230320

REACTIONS (1)
  - Choroidal effusion [Recovered/Resolved]

NARRATIVE: CASE EVENT DATE: 20240306
